FAERS Safety Report 19803580 (Version 2)
Quarter: 2021Q3

REPORT INFORMATION
  Report Type: Spontaneous
  Country: US (occurrence: US)
  Receive Date: 20210908
  Receipt Date: 20210920
  Transmission Date: 20211014
  Serious: No
  Sender: FDA-Public Use
  Company Number: US-JNJFOC-20210854883

PATIENT
  Age: 57 Year
  Sex: Female

DRUGS (2)
  1. WOMENS ROGAINE UNSCENTED [Suspect]
     Active Substance: MINOXIDIL
     Dosage: AS DIRECTED
     Route: 061
     Dates: start: 20210824
  2. WOMENS ROGAINE UNSCENTED [Suspect]
     Active Substance: MINOXIDIL
     Indication: ALOPECIA
     Dosage: AS DIRECTED ONCE DAILY
     Route: 061
     Dates: start: 2019

REACTIONS (6)
  - Dandruff [Recovered/Resolved]
  - Application site exfoliation [Unknown]
  - Application site pruritus [Recovered/Resolved]
  - Application site dryness [Recovered/Resolved]
  - Application site irritation [Recovered/Resolved]
  - Application site erythema [Recovered/Resolved]

NARRATIVE: CASE EVENT DATE: 2019
